FAERS Safety Report 4799070-0 (Version None)
Quarter: 2005Q4

REPORT INFORMATION
  Report Type: 
  Country: None (occurrence: None)
  Receive Date: 20051013
  Receipt Date: 20051003
  Transmission Date: 20060501
  Serious: Yes (Life-Threatening)
  Sender: FDA-Public Use
  Company Number: 200512018BWH

PATIENT
  Age: 32 Year
  Sex: Male

DRUGS (5)
  1. CIPRO IV [Suspect]
     Indication: ARTHRITIS BACTERIAL
     Dosage: INTRAVENOUS
     Route: 042
  2. CIPRO IV [Suspect]
     Indication: SEPSIS
     Dosage: INTRAVENOUS
     Route: 042
  3. CIPRO [Suspect]
     Indication: ARTHRITIS BACTERIAL
     Dosage: ORAL
     Route: 048
  4. CIPRO [Suspect]
     Indication: SEPSIS
     Dosage: ORAL
     Route: 048
  5. NAPROXEN [Concomitant]

REACTIONS (8)
  - AGITATION [None]
  - ANXIETY [None]
  - DEPRESSION [None]
  - INSOMNIA [None]
  - MENTAL DISORDER [None]
  - NIGHTMARE [None]
  - PARAESTHESIA [None]
  - SUICIDAL IDEATION [None]
